FAERS Safety Report 24399195 (Version 1)
Quarter: 2024Q4

REPORT INFORMATION
  Report Type: Spontaneous
  Country: BE (occurrence: BE)
  Receive Date: 20241004
  Receipt Date: 20241004
  Transmission Date: 20250115
  Serious: Yes (Hospitalization)
  Sender: DAIICHI
  Company Number: BE-DSJP-DS-2024-100875-BE

PATIENT
  Age: 56 Year

DRUGS (2)
  1. ENHERTU [Suspect]
     Active Substance: FAM-TRASTUZUMAB DERUXTECAN-NXKI
     Indication: HER2 positive breast cancer
     Dosage: UNK
     Route: 065
  2. ENHERTU [Suspect]
     Active Substance: FAM-TRASTUZUMAB DERUXTECAN-NXKI
     Indication: Breast cancer metastatic

REACTIONS (5)
  - Opportunistic infection [Unknown]
  - Pulmonary embolism [Unknown]
  - Pyrexia [Unknown]
  - Dyspnoea [Unknown]
  - Interstitial lung disease [Unknown]
